FAERS Safety Report 4511264-8 (Version None)
Quarter: 2004Q4

REPORT INFORMATION
  Report Type: 
  Country: None (occurrence: None)
  Receive Date: 20041123
  Receipt Date: 20041123
  Transmission Date: 20050328
  Serious: Yes (Hospitalization, Disabling, Other)
  Sender: FDA-Public Use
  Company Number: None

PATIENT
  Age: 50 Year
  Sex: Female
  Weight: 74.8435 kg

DRUGS (5)
  1. CORICIDIN D TABLETS [Suspect]
     Dosage: ORAL
     Route: 048
  2. MINIPRESS [Concomitant]
  3. MAXZIDE [Concomitant]
  4. PREMARIN [Concomitant]
  5. ADALAT [Concomitant]

REACTIONS (8)
  - AORTIC ATHEROSCLEROSIS [None]
  - CEREBRAL INFARCTION [None]
  - CEREBROVASCULAR ACCIDENT [None]
  - DYSARTHRIA [None]
  - FALL [None]
  - HEMIPARESIS [None]
  - HYPOAESTHESIA [None]
  - TRANSIENT ISCHAEMIC ATTACK [None]
